FAERS Safety Report 7135709-2 (Version None)
Quarter: 2010Q4

REPORT INFORMATION
  Report Type: 
  Country: None (occurrence: None)
  Receive Date: 20101203
  Receipt Date: 20101118
  Transmission Date: 20110411
  Serious: Yes (Hospitalization)
  Sender: FDA-Public Use
  Company Number: ES-ELI_LILLY_AND_COMPANY-ES201011005045

PATIENT
  Sex: Male

DRUGS (7)
  1. PEMETREXED [Suspect]
     Indication: NON-SMALL CELL LUNG CANCER STAGE III
     Dosage: 930 MG, EVERY 21 DAYS
     Route: 042
     Dates: start: 20100712, end: 20100828
  2. PEMETREXED [Suspect]
     Dosage: 870 MG, EVERY 21 DAYS
     Route: 042
     Dates: start: 20100929
  3. CISPLATIN [Suspect]
     Indication: NON-SMALL CELL LUNG CANCER STAGE III
     Dosage: 139.5 MG, EVERY 21 DAYS
     Route: 042
     Dates: start: 20100712, end: 20100828
  4. RADIATION [Suspect]
     Indication: NON-SMALL CELL LUNG CANCER STAGE III
     Dosage: 2 GY, DAILY (1/D)
     Dates: start: 20100712, end: 20100825
  5. FOLIC ACID [Concomitant]
     Indication: PROPHYLAXIS
     Dates: start: 20100701
  6. VITAMIN B-12 [Concomitant]
     Indication: PROPHYLAXIS
     Dates: start: 20100701
  7. DEXAMETHASONE [Concomitant]
     Indication: PROPHYLAXIS
     Dates: start: 20100701, end: 20100823

REACTIONS (1)
  - RESPIRATORY FAILURE [None]
